FAERS Safety Report 10563044 (Version 1)
Quarter: 2014Q4

REPORT INFORMATION
  Report Type: Spontaneous
  Country: US (occurrence: US)
  Receive Date: 20141104
  Receipt Date: 20141104
  Transmission Date: 20150529
  Serious: Yes (Death, Hospitalization)
  Sender: FDA-Public Use
  Company Number: US-PFIZER INC-2014302512

PATIENT
  Age: 62 Year
  Sex: Male

DRUGS (2)
  1. SUTENT [Suspect]
     Active Substance: SUNITINIB MALATE
     Indication: RENAL CANCER
     Dosage: 12.5 MG, (ONE CAPSULE A DAY FOR TWO WEEKS AND THEN HE WAS OFF FOR ONE WEEK)
     Dates: start: 201402
  2. MORPHINE [Concomitant]
     Active Substance: MORPHINE
     Indication: PAIN
     Dosage: UNK

REACTIONS (4)
  - Cardiac arrest [Fatal]
  - Gastrointestinal disorder [Unknown]
  - Renal vessel disorder [Unknown]
  - Generalised oedema [Unknown]

NARRATIVE: CASE EVENT DATE: 201407
